FAERS Safety Report 4388973-7 (Version None)
Quarter: 2004Q2

REPORT INFORMATION
  Report Type: 
  Country: None (occurrence: None)
  Receive Date: 20040628
  Receipt Date: 20040621
  Transmission Date: 20050107
  Serious: Yes (Life-Threatening)
  Sender: FDA-Public Use
  Company Number: 2004-117524-NL

PATIENT
  Age: 64 Year
  Sex: Male

DRUGS (4)
  1. PANCURONIUM BROMIDE [Suspect]
     Dosage: 8 MG ONCE INTRAVENOUS (NOS)
     Route: 042
     Dates: start: 20040526, end: 20040526
  2. CEFAMANDOLE NAFATE [Suspect]
     Dosage: 1.5 G ONCE  INTRAVENOUS (NOS)
     Route: 042
     Dates: start: 20040526, end: 20040526
  3. SUFENTANIL CITRATE [Suspect]
     Dosage: 50 UG ONCE INTRAVENOUS (NOS)
     Route: 042
     Dates: start: 20040526, end: 20040526
  4. PROPOFOL [Suspect]
     Dosage: 150 MG ONCE INTRAVENOUS (NOS)
     Route: 042
     Dates: start: 20040526, end: 20040526

REACTIONS (7)
  - ANAPHYLACTOID REACTION [None]
  - ANGIONEUROTIC OEDEMA [None]
  - CARDIAC ARREST [None]
  - CIRCULATORY COLLAPSE [None]
  - ERYTHEMA [None]
  - VENTRICULAR FIBRILLATION [None]
  - VENTRICULAR TACHYCARDIA [None]
